FAERS Safety Report 25078313 (Version 3)
Quarter: 2025Q4

REPORT INFORMATION
  Report Type: Spontaneous
  Country: US (occurrence: US)
  Receive Date: 20250314
  Receipt Date: 20251224
  Transmission Date: 20260118
  Serious: Yes (Other)
  Sender: COOPERSURGICAL
  Company Number: US-COOPERSURGICAL, INC.-2025CPS001715

PATIENT
  Age: 27 Year
  Sex: Female
  Weight: 72.562 kg

DRUGS (1)
  1. PARAGARD T 380A [Suspect]
     Active Substance: COPPER
     Indication: Contraception
     Dosage: UNK
     Route: 015
     Dates: start: 20100101

REACTIONS (18)
  - Surgery [Recovered/Resolved]
  - Device breakage [Not Recovered/Not Resolved]
  - Foreign body in urogenital tract [Not Recovered/Not Resolved]
  - Embedded device [Not Recovered/Not Resolved]
  - Pelvic inflammatory disease [Unknown]
  - Endometritis [Unknown]
  - Anxiety [Unknown]
  - Depression [Unknown]
  - Emotional distress [Unknown]
  - Procedural pain [Recovered/Resolved]
  - Device dislocation [Not Recovered/Not Resolved]
  - Abnormal uterine bleeding [Not Recovered/Not Resolved]
  - Menstruation irregular [Unknown]
  - Intermenstrual bleeding [Unknown]
  - Abdominal pain lower [Unknown]
  - Heavy menstrual bleeding [Unknown]
  - Muscle spasms [Unknown]
  - Intentional medical device removal by patient [Unknown]

NARRATIVE: CASE EVENT DATE: 20151101
